FAERS Safety Report 18448486 (Version 1)
Quarter: 2020Q4

REPORT INFORMATION
  Report Type: Spontaneous
  Country: IT (occurrence: IT)
  Receive Date: 20201030
  Receipt Date: 20201030
  Transmission Date: 20210114
  Serious: Yes (Death)
  Sender: FDA-Public Use
  Company Number: NVSC2020IT219232

PATIENT
  Age: 65 Year
  Sex: Female

DRUGS (1)
  1. TISAGENLECLEUCEL. [Suspect]
     Active Substance: TISAGENLECLEUCEL
     Indication: DIFFUSE LARGE B-CELL LYMPHOMA
     Dosage: 1 DF TOTAL
     Route: 042
     Dates: start: 20200723, end: 20200723

REACTIONS (3)
  - Haemophagocytic lymphohistiocytosis [Fatal]
  - Neurotoxicity [Fatal]
  - Cytokine release syndrome [Fatal]

NARRATIVE: CASE EVENT DATE: 20200724
